FAERS Safety Report 10191264 (Version 1)
Quarter: 2014Q2

REPORT INFORMATION
  Report Type: Report from Study
  Country: US (occurrence: US)
  Receive Date: 20140523
  Receipt Date: 20140523
  Transmission Date: 20141212
  Serious: Yes (Other)
  Sender: FDA-Public Use
  Company Number: PHHO2014US007297

PATIENT
  Age: 60 Year
  Sex: Male
  Weight: 119.73 kg

DRUGS (10)
  1. ACETAMINOPHEN (PARACETAMOL) [Suspect]
     Indication: COUGH
     Dosage: 325 MG, UNK
     Dates: start: 20140512, end: 20140512
  2. ACETAMINOPHEN (PARACETAMOL) [Suspect]
     Indication: NASOPHARYNGITIS
  3. BLINDED LCQ908 [Suspect]
     Indication: NON-ALCOHOLIC STEATOHEPATITIS
     Dosage: CODE NOT BROKEN
     Route: 048
     Dates: start: 20140214
  4. BLINDED NO TREATMENT RECEIVED [Suspect]
     Indication: NON-ALCOHOLIC STEATOHEPATITIS
     Dosage: CODE NOT BROKEN
     Route: 048
     Dates: start: 20140214
  5. BLINDED PLACEBO [Suspect]
     Indication: NON-ALCOHOLIC STEATOHEPATITIS
     Dosage: CODE NOT BROKEN
     Route: 048
     Dates: start: 20140214
  6. HORSE CHESTNUT EXTRACT [Concomitant]
     Indication: LOCAL SWELLING
     Dosage: 300 MG, UNK
     Dates: start: 20130801
  7. GARLIC [Concomitant]
     Indication: ROUTINE HEALTH MAINTENANCE
     Dosage: 75 MG, UNK
     Dates: start: 20130101
  8. ASPIRIN [Concomitant]
     Indication: PROPHYLAXIS
     Dosage: 81 MG, UNK
     Dates: start: 20100101
  9. MULTIVIT//VITAMINS NOS [Concomitant]
     Indication: ROUTINE HEALTH MAINTENANCE
     Dosage: 1 TAB
     Dates: start: 19900101
  10. CALCIUM CARBONATE [Concomitant]
     Indication: GASTROOESOPHAGEAL REFLUX DISEASE
     Dosage: 1 TAB
     Dates: start: 19900101

REACTIONS (2)
  - Aspartate aminotransferase increased [Not Recovered/Not Resolved]
  - Alanine aminotransferase increased [Not Recovered/Not Resolved]
